FAERS Safety Report 12858050 (Version 1)
Quarter: 2016Q4

REPORT INFORMATION
  Report Type: Spontaneous
  Country: US (occurrence: US)
  Receive Date: 20161018
  Receipt Date: 20161018
  Transmission Date: 20170207
  Serious: Yes (Hospitalization, Other)
  Sender: FDA-Public Use
  Company Number: US-SA-2016SA039345

PATIENT
  Age: 51 Year
  Sex: Female
  Weight: 95.25 kg

DRUGS (15)
  1. AMLODIPINE BESILATE [Concomitant]
     Active Substance: AMLODIPINE BESYLATE
     Dosage: DAYS: 30 DAYS ?QUANTITY: 30 TABLETS
     Route: 048
  2. LISINOPRIL. [Concomitant]
     Active Substance: LISINOPRIL
     Dosage: DAYS: 30?QUANTITY: 30 TABLETS
     Route: 048
  3. OXCARBAZEPINE. [Concomitant]
     Active Substance: OXCARBAZEPINE
     Dosage: TAKE 3 TABLET 3 TIMES DAILY?QUANTITY: 810 CAPSULES?REFILLS: 1
     Route: 048
     Dates: start: 20140210
  4. BACLOFEN. [Concomitant]
     Active Substance: BACLOFEN
     Route: 048
     Dates: start: 20150204
  5. DOCUSATE SODIUM. [Concomitant]
     Active Substance: DOCUSATE SODIUM
     Dosage: 1 CAPSULE TWICE DAILY?QUANTITY: SUFFICIENT CAPSULE
     Route: 048
  6. TEGRETOL [Concomitant]
     Active Substance: CARBAMAZEPINE
     Dosage: EXTENDED RELEASE?TAKE 3 TABLETS 3 TIMES DAILY?QUANTITY: 270 TABLETS 12 HOURS?REFILLS: 2
     Route: 048
     Dates: start: 20150212
  7. BOTOX [Concomitant]
     Active Substance: ONABOTULINUMTOXINA
     Dosage: BOTOX SOLR ?QUANTITY: SUFFICIENT SOLUTION RECONSTITUTED
  8. LEMTRADA [Suspect]
     Active Substance: ALEMTUZUMAB
     Indication: MULTIPLE SCLEROSIS
     Route: 041
     Dates: start: 20160215, end: 20160219
  9. VITAMIN D [Concomitant]
     Active Substance: CHOLECALCIFEROL
     Dosage: TAKE 1 CAPSULE DAILY?DAYS: 30?QUANTITY: 30 CAPSULES?REFILLS: 5
     Dates: start: 19900111
  10. ACYCLOVIR. [Concomitant]
     Active Substance: ACYCLOVIR
     Dosage: DAYS: 30 DAYS ?QUANTITY: 90 CAPSULE?REFILLS: 1
     Route: 048
     Dates: start: 20160205
  11. BACLOFEN. [Concomitant]
     Active Substance: BACLOFEN
     Route: 048
     Dates: start: 20151102
  12. NORTRIPTYLINE HYDROCHLORIDE. [Concomitant]
     Active Substance: NORTRIPTYLINE HYDROCHLORIDE
     Dosage: TAKE 2 CAPSULE BEDTIME?QUANTITY: 10 CAPSULE
     Route: 048
     Dates: start: 20151209
  13. NORTRIPTYLINE HYDROCHLORIDE. [Concomitant]
     Active Substance: NORTRIPTYLINE HYDROCHLORIDE
     Dosage: TAKE 2 CAPSULE BEDTIME?QUANTITY: 180 CAPSULE?REFILLS: 2
     Route: 048
     Dates: start: 20110114
  14. VESICARE [Concomitant]
     Active Substance: SOLIFENACIN SUCCINATE
     Dosage: TAKE 1 TABLET DAILY?QUANTITY: SUFFICIENT TABS
     Route: 048
  15. LEXAPRO [Concomitant]
     Active Substance: ESCITALOPRAM OXALATE
     Dosage: DAYS: 90?QUANTITY: 90 TABLETS?REFILLS: 1
     Route: 048
     Dates: start: 20101108

REACTIONS (3)
  - Pneumonia [Recovering/Resolving]
  - Upper respiratory tract infection [Recovering/Resolving]
  - Headache [Recovered/Resolved]

NARRATIVE: CASE EVENT DATE: 2016
